FAERS Safety Report 9459505 (Version 1)
Quarter: 2013Q3

REPORT INFORMATION
  Report Type: Spontaneous
  Country: US (occurrence: US)
  Receive Date: 20130815
  Receipt Date: 20130815
  Transmission Date: 20140515
  Serious: No
  Sender: FDA-Public Use
  Company Number: US-PFIZER INC-2013233882

PATIENT
  Age: 70 Year
  Sex: Male

DRUGS (10)
  1. SUTENT [Suspect]
     Indication: RENAL CANCER
     Dosage: 25 MG, UNK
     Dates: start: 20130304
  2. ACETYLSALICYLIC ACID [Concomitant]
     Dosage: UNK
  3. IMODIUM A-D [Concomitant]
     Dosage: UNK
  4. CIPROFLOXACIN HYDROCHLORIDE [Concomitant]
     Dosage: UNK
  5. LEVOTHROID [Concomitant]
     Dosage: UNK
  6. FISH OIL [Concomitant]
     Dosage: UNK
  7. OMEPRAZOLE [Concomitant]
     Dosage: UNK
  8. GLIPIZIDE [Concomitant]
     Dosage: UNK
  9. SUCRALFATE [Concomitant]
     Dosage: UNK
  10. HYDROCODONE W/ACETAMINOPHEN [Concomitant]
     Dosage: UNK

REACTIONS (1)
  - Diarrhoea [Unknown]
